FAERS Safety Report 9499570 (Version 3)
Quarter: 2013Q4

REPORT INFORMATION
  Report Type: Spontaneous
  Country: US (occurrence: None)
  Receive Date: 20130107
  Receipt Date: 20131226
  Transmission Date: 20140711
  Serious: Yes (Other)
  Sender: FDA-Public Use
  Company Number: PHEH2012US020753

PATIENT
  Age: 47 Year
  Sex: Female
  Weight: 100.4 kg

DRUGS (5)
  1. GILENYA [Suspect]
     Indication: RELAPSING-REMITTING MULTIPLE SCLEROSIS
     Route: 048
     Dates: start: 20120605
  2. ADVIL [Concomitant]
  3. ADVIL PM [Concomitant]
  4. ADDERAL [Concomitant]
  5. VITAMIN (ASCORBIC ACID, CALCIUM PANTOTHENATE, CALCIUM PHOSPHATE, ERGOCALCIFEROL, FERROUS FUMARATE) [Concomitant]

REACTIONS (11)
  - Ear infection [None]
  - Sinusitis [None]
  - Fall [None]
  - Balance disorder [None]
  - Hypoaesthesia [None]
  - Asthenia [None]
  - Respiratory tract infection [None]
  - Dyspnoea [None]
  - Hypertension [None]
  - Pain in extremity [None]
  - Neck pain [None]
